FAERS Safety Report 9507244 (Version 1)
Quarter: 2013Q1

REPORT INFORMATION
  Report Type: Spontaneous
  Country: US (occurrence: None)
  Receive Date: 20130305
  Receipt Date: 20130305
  Transmission Date: 20140127
  Serious: Yes (Hospitalization, Other)
  Sender: FDA-Public Use
  Company Number: 163-21880-12113234

PATIENT
  Age: 70 Year
  Sex: Male
  Weight: 83.92 kg

DRUGS (6)
  1. REVLIMID (LENALIDOMIDE) (25 MILLIGRAM, CAPSULES) [Suspect]
     Indication: PLASMA CELL MYELOMA
     Route: 048
     Dates: start: 20121004
  2. ALDACTONE (SPIRONOLACTONE) (TABLETS) [Concomitant]
  3. COREG (CARVEDILOL) (TABLETS) [Concomitant]
  4. CRESTOR (ROSUVASTATIN) (TABLETS) [Concomitant]
  5. LOVAZA (OMEGA-3 MARINE TRIGLYCERIDES) (CAPSULES) [Concomitant]
  6. RAMIPRIL (RAMIPRIL) (CAPSULES) [Concomitant]
     Dosage: 25 MG, 1 IN 1 D, PO
     Route: 048

REACTIONS (2)
  - Pleural effusion [None]
  - Drug dose omission [None]
